FAERS Safety Report 16163836 (Version 4)
Quarter: 2019Q2

REPORT INFORMATION
  Report Type: Spontaneous
  Country: JP (occurrence: JP)
  Receive Date: 20190405
  Receipt Date: 20190429
  Transmission Date: 20190711
  Serious: No
  Sender: FDA-Public Use
  Company Number: JP-PFIZER INC-2019146212

PATIENT
  Weight: 2.75 kg

DRUGS (3)
  1. AMOXICILLIN. [Suspect]
     Active Substance: AMOXICILLIN
     Dosage: 250 MG, DAILY
     Route: 064
  2. AMOXICILLIN. [Suspect]
     Active Substance: AMOXICILLIN
     Dosage: 750 MG, DAILY
     Route: 064
  3. MEROPENEM. [Suspect]
     Active Substance: MEROPENEM
     Dosage: 2 G, DAILY
     Route: 064

REACTIONS (1)
  - Maternal exposure during pregnancy [Unknown]
